FAERS Safety Report 7626226 (Version 2)
Quarter: 2013Q1

REPORT INFORMATION
  Report Type: Report from Study
  Country: AU (occurrence: AU)
  Receive Date: 20101013
  Receipt Date: 20130320
  Transmission Date: 20140127
  Serious: Yes (Hospitalization)
  Sender: FDA-Public Use
  Company Number: AU-JNJFOC-20101000701

PATIENT
  Age: 67 Year
  Sex: Male
  Weight: 110 kg

DRUGS (16)
  1. GOLIMUMAB [Suspect]
     Indication: RHEUMATOID ARTHRITIS
     Route: 042
     Dates: start: 20100902
  2. GOLIMUMAB [Suspect]
     Indication: RHEUMATOID ARTHRITIS
     Route: 042
     Dates: start: 20100415
  3. METHOTREXATE [Suspect]
     Indication: RHEUMATOID ARTHRITIS
  4. FEXOFENADINE HYDROCHLORIDE [Concomitant]
     Indication: PROPHYLAXIS
     Route: 048
     Dates: start: 20100415
  5. PARACETAMOL [Concomitant]
     Indication: PROPHYLAXIS
     Route: 048
     Dates: start: 20100415
  6. FOLIC ACID [Concomitant]
     Indication: PROPHYLAXIS
     Route: 048
     Dates: start: 20100223
  7. ALLOPURINOL [Concomitant]
     Indication: HYPERURICAEMIA
     Route: 048
  8. COLCHICINE [Concomitant]
     Indication: HYPERURICAEMIA
     Route: 048
  9. PROBENECID [Concomitant]
     Indication: HYPERURICAEMIA
     Route: 048
  10. ESOMEPRAZOLE [Concomitant]
     Indication: GASTROOESOPHAGEAL REFLUX DISEASE
     Route: 048
  11. PARACETAMOL AND CODEINE [Concomitant]
     Indication: RHEUMATOID ARTHRITIS
     Route: 048
  12. SALBUTAMOL SULPHATE [Concomitant]
     Indication: OBSTRUCTIVE AIRWAYS DISORDER
     Route: 055
  13. PREDNISONE [Concomitant]
     Indication: RHEUMATOID ARTHRITIS
     Dates: start: 20100616, end: 20100929
  14. PREDNISONE [Concomitant]
     Indication: RHEUMATOID ARTHRITIS
     Dates: start: 20100930
  15. TRIAMCINOLONE [Concomitant]
     Indication: OTITIS EXTERNA
  16. NEOMYCIN [Concomitant]
     Indication: OTITIS EXTERNA

REACTIONS (2)
  - Nephrolithiasis [Recovered/Resolved]
  - Upper respiratory tract infection [Recovered/Resolved]
